FAERS Safety Report 16112372 (Version 2)
Quarter: 2019Q2

REPORT INFORMATION
  Report Type: Spontaneous
  Country: JP (occurrence: JP)
  Receive Date: 20190325
  Receipt Date: 20190426
  Transmission Date: 20190711
  Serious: Yes (Hospitalization, Other)
  Sender: FDA-Public Use
  Company Number: JP-ELI_LILLY_AND_COMPANY-JP201903008071

PATIENT
  Sex: Male
  Weight: 54 kg

DRUGS (8)
  1. KEYTRUDA [Suspect]
     Active Substance: PEMBROLIZUMAB
     Indication: LUNG ADENOCARCINOMA STAGE IV
     Dosage: 200 MG
     Route: 041
     Dates: start: 20190226
  2. PANVITAN [ASCORBIC ACID;CALCIUM PANTOTHENATE; [Concomitant]
     Indication: PROPHYLAXIS
     Dosage: 1 G
     Route: 048
     Dates: start: 20190215, end: 20190328
  3. WARFARIN POTASSIUM [Concomitant]
     Active Substance: WARFARIN POTASSIUM
     Indication: TROUSSEAU^S SYNDROME
     Dosage: 2 MG
     Route: 048
     Dates: start: 20190215, end: 20190226
  4. WARFARIN POTASSIUM [Concomitant]
     Active Substance: WARFARIN POTASSIUM
     Dosage: 2.5 MG
     Route: 048
     Dates: start: 20190227, end: 20190307
  5. MECOBALAMIN [Concomitant]
     Active Substance: METHYLCOBALAMIN
     Indication: PROPHYLAXIS
     Dosage: 500 UG, SINGLE
     Route: 030
     Dates: start: 20190215, end: 20190215
  6. ZOLEDRONIC ACID [Concomitant]
     Active Substance: ZOLEDRONIC ACID
     Indication: HYPERCALCAEMIA
     Dosage: 4 MG
     Route: 041
     Dates: start: 20190226, end: 20190226
  7. ALIMTA [Suspect]
     Active Substance: PEMETREXED DISODIUM
     Indication: LUNG ADENOCARCINOMA STAGE IV
     Dosage: 800 MG, SINGLE
     Route: 041
     Dates: start: 20190226, end: 20190226
  8. CARBOPLATIN. [Suspect]
     Active Substance: CARBOPLATIN
     Indication: LUNG ADENOCARCINOMA STAGE IV
     Dosage: 340 MG, SINGLE
     Route: 041
     Dates: start: 20190226, end: 20190226

REACTIONS (4)
  - Abdominal pain upper [Unknown]
  - Febrile neutropenia [Unknown]
  - Myocardial infarction [Recovering/Resolving]
  - Platelet count decreased [Recovering/Resolving]

NARRATIVE: CASE EVENT DATE: 20190304
